FAERS Safety Report 7786054-3 (Version None)
Quarter: 2011Q3

REPORT INFORMATION
  Report Type: 
  Country: None (occurrence: None)
  Receive Date: 20110929
  Receipt Date: 20110916
  Transmission Date: 20111222
  Serious: Yes (Hospitalization)
  Sender: FDA-Public Use
  Company Number: US-ELI_LILLY_AND_COMPANY-US201107004260

PATIENT
  Sex: Female

DRUGS (21)
  1. FAMOTIDINE [Concomitant]
     Dosage: UNK, QD
  2. SENOKOT [Concomitant]
     Indication: CONSTIPATION
  3. FENTANYL [Concomitant]
  4. ESTROTEST [Concomitant]
     Dosage: UNK, QD
  5. NORCO [Concomitant]
     Dosage: UNK, TID
  6. PROAIR HFA [Concomitant]
     Dosage: UNK, 4/W
  7. FORTEO [Suspect]
     Indication: OSTEOPOROSIS
     Dosage: 20 UG, QD
     Route: 065
     Dates: start: 20110601
  8. CALCIFEROL [Concomitant]
     Dosage: 50000 MG, WEEKLY (1/W)
  9. FORTEO [Suspect]
     Dosage: 20 UG, QD
     Route: 065
  10. DURAGESIC-100 [Concomitant]
     Dosage: 75 UG, UNK
  11. LEVAQUIN [Concomitant]
     Dosage: UNK, QD
  12. CALCIUM CARBONATE [Concomitant]
     Dosage: UNK UNK, QD
  13. BENEFIBER [Concomitant]
     Indication: CONSTIPATION
  14. VITAMIN D [Concomitant]
  15. PEPCID [Concomitant]
  16. LIDODERM [Concomitant]
  17. ENSURE                             /06184901/ [Concomitant]
     Dosage: UNK, PRN
  18. ROBAXIN [Concomitant]
     Dosage: 1000 MG, TID
  19. ROBAXIN [Concomitant]
     Dosage: 500 MG, TID
  20. VITAMIN B-12 [Concomitant]
     Dosage: 1000 UG, MONTHLY (1/M)
  21. MUCINEX [Concomitant]
     Dosage: UNK, BID

REACTIONS (3)
  - BRONCHITIS [None]
  - BONE PAIN [None]
  - BLOOD POTASSIUM DECREASED [None]
